FAERS Safety Report 16784490 (Version 2)
Quarter: 2019Q3

REPORT INFORMATION
  Report Type: Spontaneous
  Country: GB (occurrence: GB)
  Receive Date: 20190909
  Receipt Date: 20190920
  Transmission Date: 20191005
  Serious: Yes (Other)
  Sender: FDA-Public Use
  Company Number: GB-SA-2018SA333902

PATIENT
  Age: 57 Year
  Sex: Female

DRUGS (1)
  1. DUPILUMAB [Suspect]
     Active Substance: DUPILUMAB
     Indication: ECZEMA
     Dosage: UNK
     Route: 058
     Dates: start: 20181025

REACTIONS (5)
  - Granuloma [Unknown]
  - Conjunctivitis [Unknown]
  - Asthma [Unknown]
  - Sarcoidosis [Unknown]
  - Hilar lymphadenopathy [Unknown]
